FAERS Safety Report 9114264 (Version 1)
Quarter: 2013Q1

REPORT INFORMATION
  Report Type: Spontaneous
  Country: NO (occurrence: NO)
  Receive Date: 20130208
  Receipt Date: 20130208
  Transmission Date: 20140127
  Serious: Yes (Death, Other)
  Sender: FDA-Public Use
  Company Number: NO-BRISTOL-MYERS SQUIBB COMPANY-17348335

PATIENT
  Sex: 0

DRUGS (5)
  1. AMPICILLIN [Suspect]
  2. ABBOTICIN [Suspect]
  3. ERYMAX [Suspect]
  4. GENTAMICIN [Suspect]
  5. YASMIN [Suspect]

REACTIONS (6)
  - Anencephaly [Fatal]
  - Congenital central nervous system anomaly [Fatal]
  - Exomphalos [Fatal]
  - Spina bifida cystica [Fatal]
  - Cleft lip and palate [Not Recovered/Not Resolved]
  - Exposure during pregnancy [None]
